FAERS Safety Report 21965431 (Version 1)
Quarter: 2023Q1

REPORT INFORMATION
  Report Type: Spontaneous
  Country: US (occurrence: US)
  Receive Date: 20230208
  Receipt Date: 20230208
  Transmission Date: 20230417
  Serious: No
  Sender: FDA-Public Use
  Company Number: US-GLENMARK PHARMACEUTICALS-2022GMK073019

PATIENT

DRUGS (5)
  1. ZONISAMIDE [Suspect]
     Active Substance: ZONISAMIDE
     Indication: Seizure
     Dosage: UNK
     Route: 048
     Dates: start: 20211015, end: 20220221
  2. ZONISAMIDE [Suspect]
     Active Substance: ZONISAMIDE
     Indication: Seizure
     Dosage: 4 DOSAGE FORM, QD (DOSE TITRATION)
     Route: 048
     Dates: start: 202111
  3. ZONISAMIDE [Suspect]
     Active Substance: ZONISAMIDE
     Dosage: 3 DOSAGE FORM, QD
     Route: 048
     Dates: end: 20220221
  4. LOSARTAN [Concomitant]
     Active Substance: LOSARTAN
     Indication: Hypertension
     Dosage: UNK, OD
     Route: 048
  5. PRAVASTATIN SODIUM [Concomitant]
     Active Substance: PRAVASTATIN SODIUM
     Indication: Blood cholesterol increased
     Dosage: UNK, OD
     Route: 048

REACTIONS (7)
  - Feeling abnormal [Unknown]
  - Recalled product administered [Unknown]
  - Agitation [Unknown]
  - Diarrhoea [Unknown]
  - Constipation [Unknown]
  - Insomnia [Unknown]
  - Anxiety [Unknown]

NARRATIVE: CASE EVENT DATE: 20211015
